FAERS Safety Report 8157257-3 (Version None)
Quarter: 2012Q1

REPORT INFORMATION
  Report Type: 
  Country: None (occurrence: None)
  Receive Date: 20120222
  Receipt Date: 20120221
  Transmission Date: 20120608
  Serious: Yes (Hospitalization)
  Sender: FDA-Public Use
  Company Number: DK-JNJFOC-20120203871

PATIENT
  Sex: Female

DRUGS (1)
  1. NIZORAL [Suspect]
     Indication: FUNGAL SKIN INFECTION
     Route: 065
     Dates: start: 20111001, end: 20111001

REACTIONS (3)
  - FATIGUE [None]
  - NAUSEA [None]
  - HEPATIC FUNCTION ABNORMAL [None]
